FAERS Safety Report 24224699 (Version 1)
Quarter: 2024Q3

REPORT INFORMATION
  Report Type: Spontaneous
  Country: US (occurrence: US)
  Receive Date: 20240819
  Receipt Date: 20240819
  Transmission Date: 20241016
  Serious: Yes (Disabling)
  Sender: GILEAD
  Company Number: US-GILEAD-2024-0684458

PATIENT
  Sex: Female

DRUGS (1)
  1. LENACAPAVIR [Suspect]
     Active Substance: LENACAPAVIR
     Indication: HIV infection
     Dosage: INJECT 927MG (2 X 1.5ML) IN 2 SEPARATE SITES EVERY 6 MONTHS
     Route: 058
     Dates: start: 202405

REACTIONS (1)
  - Feeling of despair [Unknown]
